FAERS Safety Report 22000391 (Version 2)
Quarter: 2023Q2

REPORT INFORMATION
  Report Type: Report from Study
  Country: GB (occurrence: GB)
  Receive Date: 20230216
  Receipt Date: 20230413
  Transmission Date: 20230722
  Serious: Yes (Other)
  Sender: FDA-Public Use
  Company Number: GB-JNJFOC-20221124331

PATIENT
  Age: 47 Year
  Sex: Male

DRUGS (3)
  1. IRINOTECAN HYDROCHLORIDE [Interacting]
     Active Substance: IRINOTECAN HYDROCHLORIDE
     Indication: Gastrointestinal carcinoma
     Dosage: 1 TIME EVERY 1 WEEK
     Route: 065
  2. ENCORAFENIB [Suspect]
     Active Substance: ENCORAFENIB
     Indication: Colorectal cancer
     Dosage: UNK
  3. APALUTAMIDE [Interacting]
     Active Substance: APALUTAMIDE
     Indication: Prostate cancer
     Dosage: 240 MG, 1 TIME EVERY 1 DAY
     Route: 048
     Dates: start: 20220330, end: 20230331

REACTIONS (4)
  - Drug interaction [Unknown]
  - Brain fog [Unknown]
  - Fatigue [Unknown]
  - Neoplasm progression [Unknown]

NARRATIVE: CASE EVENT DATE: 20221001
